FAERS Safety Report 20956756 (Version 1)
Quarter: 2022Q2

REPORT INFORMATION
  Report Type: Report from Study
  Country: US (occurrence: US)
  Receive Date: 20220614
  Receipt Date: 20220614
  Transmission Date: 20220721
  Serious: No
  Sender: FDA-Public Use
  Company Number: US-NOVARTISTESTPH-NVSC2022US135947

PATIENT
  Age: 17 Year
  Sex: Female

DRUGS (1)
  1. PREDNISONE [Suspect]
     Active Substance: PREDNISONE
     Indication: Systemic lupus erythematosus
     Dosage: 80 MG, QD
     Route: 048
     Dates: start: 1996, end: 1996

REACTIONS (2)
  - Rash [Recovered/Resolved]
  - Condition aggravated [Recovered/Resolved]
